FAERS Safety Report 5913843-X (Version None)
Quarter: 2008Q4

REPORT INFORMATION
  Report Type: 
  Country: None (occurrence: None)
  Receive Date: 20081009
  Receipt Date: 20081002
  Transmission Date: 20090506
  Serious: Yes (Death)
  Sender: FDA-Public Use
  Company Number: A0750279A

PATIENT
  Age: 76 Year
  Sex: Female

DRUGS (5)
  1. TYKERB [Suspect]
     Indication: BREAST CANCER
     Dosage: 1250MG PER DAY
     Route: 048
     Dates: start: 20080830, end: 20080930
  2. XELODA [Concomitant]
  3. WARFARIN SODIUM [Concomitant]
  4. LEVOTHYROXINE SODIUM [Concomitant]
  5. DIGOXIN [Concomitant]

REACTIONS (1)
  - DEATH [None]
